FAERS Safety Report 6705318-5 (Version None)
Quarter: 2010Q2

REPORT INFORMATION
  Report Type: 
  Country: None (occurrence: None)
  Receive Date: 20100501
  Receipt Date: 20100420
  Transmission Date: 20101027
  Serious: No
  Sender: FDA-Public Use
  Company Number: US-ELI_LILLY_AND_COMPANY-US200906004075

PATIENT
  Sex: Female

DRUGS (3)
  1. CYMBALTA [Suspect]
     Indication: ANXIETY
     Dosage: 90 MG, DAILY (1/D)
  2. CYMBALTA [Suspect]
     Dosage: 120 MG, DAILY (1/D)
  3. CYMBALTA [Suspect]
     Dosage: 60 MG, DAILY (1/D)
     Dates: start: 20100417

REACTIONS (6)
  - APATHY [None]
  - ASPARTATE AMINOTRANSFERASE INCREASED [None]
  - FEELING ABNORMAL [None]
  - NEGATIVE THOUGHTS [None]
  - PARANOIA [None]
  - THERAPEUTIC RESPONSE DECREASED [None]
